FAERS Safety Report 20129155 (Version 1)
Quarter: 2021Q4

REPORT INFORMATION
  Report Type: Spontaneous
  Country: NZ (occurrence: None)
  Receive Date: 20211130
  Receipt Date: 20211130
  Transmission Date: 20220304
  Serious: Yes (Hospitalization, Other)
  Sender: FDA-Public Use
  Company Number: NZ-ROCHE-2946193

PATIENT
  Age: 21 Year
  Sex: Male
  Weight: 128.7 kg

DRUGS (9)
  1. RITUXIMAB [Suspect]
     Active Substance: RITUXIMAB
     Indication: Primary mediastinal large B-cell lymphoma
     Dosage: END DATE OF 1ST SYSTEMIC TREATMENT :08/JUL/2020
     Route: 042
     Dates: start: 20200324, end: 20200708
  2. RITUXIMAB [Suspect]
     Active Substance: RITUXIMAB
     Dosage: END DATE OF 2ND SYSTEMIC TREATMENT: 22/NOV/2020
     Route: 042
     Dates: start: 20201012
  3. CYCLOPHOSPHAMIDE [Suspect]
     Active Substance: CYCLOPHOSPHAMIDE
     Indication: Primary mediastinal large B-cell lymphoma
     Dosage: END DATE OF 1ST SYSTEMIC TREATMENT :08/JUL/2020
     Route: 065
     Dates: start: 20200324
  4. DOXORUBICIN [Suspect]
     Active Substance: DOXORUBICIN
     Indication: Primary mediastinal large B-cell lymphoma
     Dosage: END DATE OF 1ST SYSTEMIC TREATMENT :08/JUL/2020
     Route: 065
     Dates: start: 20200324
  5. VINCRISTINE [Suspect]
     Active Substance: VINCRISTINE
     Indication: Primary mediastinal large B-cell lymphoma
     Dosage: END DATE OF 1ST SYSTEMIC TREATMENT :08/JUL/2020
     Route: 065
     Dates: start: 20200324
  6. PREDNISOLONE [Suspect]
     Active Substance: PREDNISOLONE
     Indication: Primary mediastinal large B-cell lymphoma
     Dosage: END DATE OF 1ST SYSTEMIC TREATMENT :08/JUL/2020
     Route: 065
     Dates: start: 20200324
  7. IFOSFAMIDE [Suspect]
     Active Substance: IFOSFAMIDE
     Indication: Primary mediastinal large B-cell lymphoma
     Dosage: END DATE OF 2ND SYSTEMIC TREATMENT: 22/NOV/2020
     Route: 065
     Dates: start: 20201012
  8. CARBOPLATIN [Suspect]
     Active Substance: CARBOPLATIN
     Indication: Primary mediastinal large B-cell lymphoma
     Dosage: END DATE OF 2ND SYSTEMIC TREATMENT: 22/NOV/2020
     Route: 065
     Dates: start: 20201012
  9. ETOPOSIDE [Suspect]
     Active Substance: ETOPOSIDE
     Indication: Primary mediastinal large B-cell lymphoma
     Dosage: END DATE OF 2ND SYSTEMIC TREATMENT: 22/NOV/2020
     Route: 065
     Dates: start: 20201012

REACTIONS (4)
  - Renal neoplasm [Unknown]
  - Resorption bone increased [Unknown]
  - Off label use [Unknown]
  - Ill-defined disorder [Not Recovered/Not Resolved]

NARRATIVE: CASE EVENT DATE: 20200801
